FAERS Safety Report 15049182 (Version 5)
Quarter: 2018Q3

REPORT INFORMATION
  Report Type: Spontaneous
  Country: US (occurrence: US)
  Receive Date: 20180622
  Receipt Date: 20180814
  Transmission Date: 20181010
  Serious: Yes (Hospitalization)
  Sender: FDA-Public Use
  Company Number: US-B.I. PHARMACEUTICALS,INC./RIDGEFIELD-2018-BI-031746

PATIENT
  Age: 66 Year
  Sex: Male

DRUGS (2)
  1. AGGRENOX [Suspect]
     Active Substance: ASPIRIN\DIPYRIDAMOLE
     Indication: CEREBROVASCULAR ACCIDENT PROPHYLAXIS
     Dosage: FORM STRENGTH/UNIT DOSE: 25 MG/200 MG
     Route: 048
     Dates: start: 20170825
  2. AGGRENOX [Suspect]
     Active Substance: ASPIRIN\DIPYRIDAMOLE
     Dosage: FORM STRENGTH/UNIT DOSE: 25 MG/200 MG
     Route: 048
     Dates: start: 201801

REACTIONS (3)
  - Abdominal discomfort [Recovered/Resolved]
  - Hypertension [Not Recovered/Not Resolved]
  - Abdominal pain upper [Recovered/Resolved]

NARRATIVE: CASE EVENT DATE: 201804
